FAERS Safety Report 6565262-3 (Version None)
Quarter: 2010Q1

REPORT INFORMATION
  Report Type: 
  Country: None (occurrence: None)
  Receive Date: 20100201
  Receipt Date: 20100121
  Transmission Date: 20100710
  Serious: Yes (Death)
  Sender: FDA-Public Use
  Company Number: US-ROCHE-679450

PATIENT
  Sex: Female
  Weight: 61.2 kg

DRUGS (1)
  1. XELODA [Suspect]
     Dosage: DOSE: THREE TABLETS, TWO WEEKS ON- ONE WEEK OFF
     Route: 048
     Dates: start: 20090501, end: 20091101

REACTIONS (1)
  - MALIGNANT NEOPLASM PROGRESSION [None]
